FAERS Safety Report 16121715 (Version 1)
Quarter: 2019Q1

REPORT INFORMATION
  Report Type: Report from Study
  Country: FR (occurrence: FR)
  Receive Date: 20190327
  Receipt Date: 20190327
  Transmission Date: 20190418
  Serious: Yes (Hospitalization)
  Sender: FDA-Public Use
  Company Number: FR-SA-2019SA079590

PATIENT
  Age: 50 Year
  Sex: Female

DRUGS (4)
  1. BLINDED LIXISENATIDE [Suspect]
     Active Substance: LIXISENATIDE
     Dosage: 10(UNIT UNSPECIFIED )
  2. BLINDED LIXISENATIDE [Suspect]
     Active Substance: LIXISENATIDE
     Dosage: 10(UNIT UNSPECIFIED )
  3. BLINDED PLACEBO [Suspect]
     Active Substance: INVESTIGATIONAL PRODUCT
     Dosage: 10(UNIT UNSPECIFIED )
  4. BLINDED NO STUDY DRUG GIVEN [Suspect]
     Active Substance: INVESTIGATIONAL PRODUCT
     Dosage: 10(UNIT UNSPECIFIED )

REACTIONS (1)
  - Pyelonephritis [Recovered/Resolved]

NARRATIVE: CASE EVENT DATE: 20190107
